FAERS Safety Report 9833822 (Version 1)
Quarter: 2014Q1

REPORT INFORMATION
  Report Type: Spontaneous
  Country: US (occurrence: US)
  Receive Date: 20140122
  Receipt Date: 20140122
  Transmission Date: 20141002
  Serious: No
  Sender: FDA-Public Use
  Company Number: US-BIOGENIDEC-2014BI004816

PATIENT
  Sex: Female

DRUGS (5)
  1. TECFIDERA [Suspect]
     Indication: MULTIPLE SCLEROSIS
     Route: 048
  2. TECFIDERA [Suspect]
     Indication: MULTIPLE SCLEROSIS
     Route: 048
  3. METHOTREXATE [Concomitant]
  4. MOBIC [Concomitant]
  5. RECLAST [Concomitant]

REACTIONS (4)
  - Abdominal distension [Unknown]
  - Flatulence [Unknown]
  - General symptom [Unknown]
  - Flushing [Recovered/Resolved]
